FAERS Safety Report 5927270-2 (Version None)
Quarter: 2008Q4

REPORT INFORMATION
  Report Type: 
  Country: None (occurrence: None)
  Receive Date: 20081017
  Receipt Date: 20081009
  Transmission Date: 20090506
  Serious: Yes (Hospitalization)
  Sender: FDA-Public Use
  Company Number: 2004JP002020

PATIENT
  Age: 38 Year
  Sex: Male
  Weight: 49 kg

DRUGS (40)
  1. PROGRAF [Suspect]
     Indication: LUNG TRANSPLANT
     Dosage: SEE IMAGE
     Route: 048
     Dates: start: 20040213, end: 20040305
  2. PROGRAF [Suspect]
     Indication: LUNG TRANSPLANT
     Dosage: SEE IMAGE
     Route: 048
     Dates: start: 20040306, end: 20040506
  3. PROGRAF [Suspect]
     Indication: LUNG TRANSPLANT
     Dosage: SEE IMAGE
     Route: 048
     Dates: start: 20040507, end: 20040804
  4. PROGRAF [Suspect]
     Indication: LUNG TRANSPLANT
     Dosage: SEE IMAGE
     Route: 048
     Dates: start: 20040805, end: 20050127
  5. PROGRAF [Suspect]
     Indication: LUNG TRANSPLANT
     Dosage: SEE IMAGE
     Route: 048
     Dates: start: 20050128, end: 20050714
  6. PROGRAF [Suspect]
     Indication: LUNG TRANSPLANT
     Dosage: SEE IMAGE
     Route: 048
     Dates: start: 20050715, end: 20060202
  7. PROGRAF [Suspect]
     Indication: LUNG TRANSPLANT
     Dosage: SEE IMAGE
     Route: 048
     Dates: start: 20060203
  8. PROGRAF [Suspect]
     Indication: LUNG TRANSPLANT
     Dosage: SEE IMAGE
     Route: 048
     Dates: start: 20060810
  9. PROGRAF [Suspect]
     Indication: LUNG TRANSPLANT
     Dosage: SEE IMAGE
     Route: 048
     Dates: start: 20070205
  10. PROGRAF [Suspect]
     Indication: LUNG TRANSPLANT
     Dosage: 1 MG, IV NOS
     Dates: start: 20040206, end: 20040213
  11. IMURAN [Suspect]
     Indication: LUNG TRANSPLANT
     Dosage: 2 MG/KG, ORAL; 50 MG, ORAL
     Route: 048
     Dates: start: 20040205, end: 20040625
  12. IMURAN [Suspect]
     Indication: LUNG TRANSPLANT
     Dosage: 2 MG/KG, ORAL; 50 MG, ORAL
     Route: 048
     Dates: start: 20050827, end: 20051027
  13. PREDNISOLONE [Suspect]
     Indication: LUNG TRANSPLANT
     Dosage: 0.5 MG/KG, ORAL; 0.3 MG/KG, ORAL; 30 MG, ORAL; 10 MG, ORAL
     Route: 048
     Dates: start: 20040217
  14. CEFOTAXIME SODIUM [Suspect]
     Indication: PNEUMONIA
     Dosage: 1 G, TID,
     Dates: start: 20061130, end: 20061204
  15. PASIL(PAZUFLOXACIN) FORMULATION UNKNOWN [Suspect]
     Indication: PNEUMONIA
     Dosage: 500 MG, BID,
     Dates: start: 20061130, end: 20061204
  16. VANCOMYCIN [Suspect]
     Dosage: IV NOS; 2 G,
     Route: 042
     Dates: start: 20040206, end: 20040208
  17. VANCOMYCIN [Suspect]
     Dosage: IV NOS; 2 G,
     Route: 042
     Dates: start: 20040218, end: 20040223
  18. VANCOMYCIN [Suspect]
     Dosage: IV NOS; 2 G,
     Route: 042
     Dates: start: 20040308, end: 20040323
  19. VANCOMYCIN [Suspect]
     Dosage: IV NOS; 2 G,
     Route: 042
     Dates: start: 20061228
  20. BISOLVON (BROMHEXINE HYDROCHLORIDE) INHALATION [Concomitant]
  21. ALOTEC (ORCIPRENALINE SULFATE) INHALATION [Concomitant]
  22. FUNGIZONE [Concomitant]
  23. BAKTAR (SULFAMETHOXAZOLE, TRIMETHOPRIM) PER ORAL NOS [Concomitant]
  24. DENOSINE ^TANABE^ (GANCICLOVIR) CAPSULE [Concomitant]
  25. ALFAROL (ALFACALCIDOL) PER ORAL NOS [Concomitant]
  26. ITRIZOLE (ITRACONAZOLE) CAPSULE [Concomitant]
  27. LASIX (FUROSEMIDE) PER ORAL NOS [Concomitant]
  28. LANSOPRAZOLE [Concomitant]
  29. ZADITEN (KETOTIFEN FUMARATE) NASAL DROP [Concomitant]
  30. ZANTAC (RANITIDINE HYDROCHLORIDE) PER ORAL NOS [Concomitant]
  31. AMOBAN (ZOPICLONE) PER ORAL NOS [Concomitant]
  32. ASPARA-CA (ASPARTATE CALCIUM) PER ORAL NOS [Concomitant]
  33. BENET (RISEDRONATE SODIUM) PER ORAL NOS [Concomitant]
  34. ZOVIRAX (ACICLOVIR) PER ORAL NOS [Concomitant]
  35. HOKUNALIN (TULOBUTEROL HYDROCHLORIDE) TAPE [Concomitant]
  36. SPIRIVA (TIOTROPIUM BROMIDE) INHALATION [Concomitant]
  37. MUCOSTA (REBAMIPIDE) PER ORAL NOS [Concomitant]
  38. SEREVENT (SALMETEROL XINAFOATE) INHALATION [Concomitant]
  39. BIOFERMIN R (STREPTOCOCCUS FAECALIS) TABLET [Concomitant]
  40. SOLDEM 3A (SODIUM LACTATE, POTASSIUM CHLORIDE, CARBOHYDRATES NOS, SODI [Concomitant]

REACTIONS (12)
  - DIARRHOEA [None]
  - DRUG HYPERSENSITIVITY [None]
  - EPSTEIN-BARR VIRUS ASSOCIATED LYMPHOPROLIFERATIVE DISORDER [None]
  - NAUSEA [None]
  - OPPORTUNISTIC INFECTION [None]
  - OSTEOMYELITIS [None]
  - PNEUMONIA [None]
  - PSEUDARTHROSIS [None]
  - STAPHYLOCOCCAL INFECTION [None]
  - STERNAL FRACTURE [None]
  - TRANSPLANT REJECTION [None]
  - VOMITING [None]
